FAERS Safety Report 12231908 (Version 1)
Quarter: 2016Q2

REPORT INFORMATION
  Report Type: Spontaneous
  Country: US (occurrence: US)
  Receive Date: 20160401
  Receipt Date: 20160401
  Transmission Date: 20160815
  Serious: Yes (Other)
  Sender: FDA-Public Use
  Company Number: ALCN2016US002245

PATIENT
  Age: 77 Year
  Sex: Male

DRUGS (2)
  1. TRIESENCE [Suspect]
     Active Substance: TRIAMCINOLONE ACETONIDE
     Indication: VITRITIS
     Dosage: UNK
     Route: 047
  2. PREDNISOLONE ACETATE. [Suspect]
     Active Substance: PREDNISOLONE ACETATE
     Indication: SCLERAL HYPERAEMIA
     Dosage: UNK
     Route: 047

REACTIONS (7)
  - Conjunctival oedema [Recovered/Resolved]
  - Scleral disorder [Recovered/Resolved]
  - Conjunctival hyperaemia [Recovered/Resolved]
  - Macular oedema [Recovered/Resolved]
  - Scleral hyperaemia [Recovered/Resolved]
  - Vitreous disorder [Recovered/Resolved]
  - Scleritis [Recovered/Resolved]
